FAERS Safety Report 9791439 (Version 1)
Quarter: 2014Q1

REPORT INFORMATION
  Report Type: Spontaneous
  Country: ES (occurrence: ES)
  Receive Date: 20140101
  Receipt Date: 20140101
  Transmission Date: 20141002
  Serious: Yes (Death, Other)
  Sender: FDA-Public Use
  Company Number: PHHY2013ES152842

PATIENT
  Age: 65 Year
  Sex: Female

DRUGS (5)
  1. IMATINIB [Suspect]
     Indication: ACUTE LEUKAEMIA
     Dosage: 600 MG, DAILY
  2. IMATINIB [Suspect]
     Dosage: 400 MG, DAILY
  3. ANTHRACYCLINES [Concomitant]
     Dosage: 600 MG, DAILY
  4. VINCRISTINE [Concomitant]
     Dosage: 600 MG, DAILY
  5. DAUNOMYCIN [Concomitant]

REACTIONS (9)
  - Death [Fatal]
  - Leukocytosis [Unknown]
  - Bone marrow leukaemic cell infiltration [Unknown]
  - Blast crisis in myelogenous leukaemia [Unknown]
  - Gene mutation identification test positive [Unknown]
  - Eyelid oedema [Unknown]
  - Oedema peripheral [Unknown]
  - Headache [Unknown]
  - Dyspnoea [Unknown]
